FAERS Safety Report 12543333 (Version 1)
Quarter: 2016Q3

REPORT INFORMATION
  Report Type: Spontaneous
  Country: CA (occurrence: None)
  Receive Date: 20160708
  Receipt Date: 20160708
  Transmission Date: 20161109
  Serious: Yes (Hospitalization)
  Sender: FDA-Public Use
  Company Number: None

PATIENT
  Age: 62 Year
  Sex: Female
  Weight: 46 kg

DRUGS (1)
  1. INTRON A [Suspect]
     Active Substance: INTERFERON ALFA-2B
     Dosage: 60 MILLION IU
     Dates: end: 20140131

REACTIONS (3)
  - Melanoma recurrent [None]
  - Metastases to lung [None]
  - Metastases to central nervous system [None]

NARRATIVE: CASE EVENT DATE: 20160222
